FAERS Safety Report 6975015-X (Version None)
Quarter: 2010Q3

REPORT INFORMATION
  Report Type: 
  Country: None (occurrence: None)
  Receive Date: 20100910
  Receipt Date: 20090304
  Transmission Date: 20110219
  Serious: No
  Sender: FDA-Public Use
  Company Number: US-WYE-H07669709

PATIENT
  Sex: Female
  Weight: 66.74 kg

DRUGS (4)
  1. PRISTIQ [Suspect]
     Indication: DEPRESSION
     Route: 048
     Dates: start: 20081101, end: 20081231
  2. MULTIVIT [Concomitant]
  3. CALCIUM [Concomitant]
  4. ALLEGRA [Concomitant]

REACTIONS (7)
  - BLOOD CHOLESTEROL INCREASED [None]
  - CONDITION AGGRAVATED [None]
  - HEPATIC ENZYME INCREASED [None]
  - LOW DENSITY LIPOPROTEIN INCREASED [None]
  - NAIL DISORDER [None]
  - VISION BLURRED [None]
  - VISUAL IMPAIRMENT [None]
